FAERS Safety Report 5096281-4 (Version None)
Quarter: 2006Q3

REPORT INFORMATION
  Report Type: 
  Country: None (occurrence: None)
  Receive Date: 20060831
  Receipt Date: 20060824
  Transmission Date: 20061208
  Serious: Yes (Death, Hospitalization, Congenital Anomaly)
  Sender: FDA-Public Use
  Company Number: TAP2006Q01478

PATIENT
  Age: 0 Day
  Sex: Male

DRUGS (1)
  1. LUPRON DEPOT-3 [Suspect]
     Indication: DRUG EXPOSURE DURING PREGNANCY
     Dosage: TRANSPLACENTAL
     Route: 064

REACTIONS (8)
  - CLEFT PALATE [None]
  - CRYPTORCHISM [None]
  - DRUG EXPOSURE DURING PREGNANCY [None]
  - GENITALIA EXTERNAL AMBIGUOUS [None]
  - HEART DISEASE CONGENITAL [None]
  - NEONATAL MULTI-ORGAN FAILURE [None]
  - SKULL MALFORMATION [None]
  - TRISOMY 13 [None]
